FAERS Safety Report 6168724-6 (Version None)
Quarter: 2009Q2

REPORT INFORMATION
  Report Type: 
  Country: None (occurrence: None)
  Receive Date: 20090427
  Receipt Date: 20090417
  Transmission Date: 20091009
  Serious: Yes (Hospitalization)
  Sender: FDA-Public Use
  Company Number: US-BAYER-200918644NA

PATIENT
  Age: 75 Year
  Sex: Female
  Weight: 40 kg

DRUGS (7)
  1. NEXAVAR [Suspect]
     Indication: RENAL CELL CARCINOMA
     Dosage: TOTAL DAILY DOSE: 800 MG  UNIT DOSE: 200 MG
     Route: 048
     Dates: start: 20090402
  2. LEVOXYL [Concomitant]
  3. NORVASC [Concomitant]
  4. VITAMIN D [Concomitant]
  5. HYDROCHLOROTHIAZIDE [Concomitant]
  6. PRAVASTATIN [Concomitant]
  7. CITRUCEL [Concomitant]

REACTIONS (4)
  - DEHYDRATION [None]
  - HYPONATRAEMIA [None]
  - HYPOTONIA [None]
  - HYPOVOLAEMIA [None]
